FAERS Safety Report 12099978 (Version 1)
Quarter: 2016Q1

REPORT INFORMATION
  Report Type: Spontaneous
  Country: US (occurrence: None)
  Receive Date: 20160219
  Receipt Date: 20160219
  Transmission Date: 20160526
  Serious: No
  Sender: FDA-Public Use
  Company Number: None

PATIENT

DRUGS (2)
  1. TIMOLOL MALEATE TIMOLOL MALEATE [Suspect]
     Active Substance: TIMOLOL MALEATE
     Route: 047
  2. CARTEOLOL HCL CARTEOLOL HYDROCHLORIDE [Suspect]
     Active Substance: CARTEOLOL HYDROCHLORIDE
     Route: 047

REACTIONS (2)
  - Intercepted product selection error [None]
  - Product label confusion [None]
